FAERS Safety Report 8518788-7 (Version None)
Quarter: 2012Q3

REPORT INFORMATION
  Report Type: 
  Country: None (occurrence: None)
  Receive Date: 20120718
  Receipt Date: 20120711
  Transmission Date: 20120928
  Serious: Yes (Death)
  Sender: FDA-Public Use
  Company Number: PHHY2012SE060838

PATIENT
  Age: 87 Year
  Sex: Male

DRUGS (2)
  1. EXELON [Suspect]
     Indication: DEMENTIA
     Dosage: 9.5 MG/24 HR, DAILY
     Route: 062
  2. EXELON [Suspect]
     Dosage: 9.5 MG/24 HR X 6 PATCHES DAILY
     Route: 062

REACTIONS (11)
  - VOMITING [None]
  - RENAL TUBULAR NECROSIS [None]
  - DRUG LABEL CONFUSION [None]
  - AZOTAEMIA [None]
  - DEHYDRATION [None]
  - ELECTROLYTE IMBALANCE [None]
  - OVERDOSE [None]
  - INCORRECT DOSE ADMINISTERED [None]
  - NAUSEA [None]
  - TOXICITY TO VARIOUS AGENTS [None]
  - RENAL FAILURE [None]
